FAERS Safety Report 7600295-7 (Version None)
Quarter: 2011Q2

REPORT INFORMATION
  Report Type: 
  Country: None (occurrence: None)
  Receive Date: 20110629
  Receipt Date: 20110616
  Transmission Date: 20111010
  Serious: Yes (Hospitalization, Other)
  Sender: FDA-Public Use
  Company Number: JP-2011-10668

PATIENT
  Age: 61 Year
  Sex: Male

DRUGS (34)
  1. SAMSCA [Suspect]
     Indication: CARDIAC FAILURE CHRONIC
     Dosage: 7.5 MG MILLIGRAM(S), QAM, ORAL
     Route: 048
     Dates: start: 20110317, end: 20110416
  2. ALDACTONE S (SPIRONOLACTONE) [Concomitant]
  3. DEPAS (ETIZOLAM) [Concomitant]
  4. ADOAIR (ALMETEROL XINAFOATE_FLUTICASONE PROPIONATE) [Concomitant]
  5. PREDOPA (DOPAMAINE HYDROCHLORIDE) [Concomitant]
  6. LASIX [Concomitant]
  7. APRESOLINE [Concomitant]
  8. MUCOSOLVAN (AMBROXOL HYDROCHLORIDE) [Concomitant]
  9. PIMOBENDAN (PIMOBENDAN) [Concomitant]
  10. AMCARON (AMIODARONE HYDROCHLORIDE) [Concomitant]
  11. WARFARIN (WARFARNI POTASSIUM) [Concomitant]
  12. PURSENNID (SENNOSIDE) [Concomitant]
  13. LASIX [Concomitant]
  14. RINDERON-VG (BETAMETHASONE VALERATE_GENTAMICIN) [Concomitant]
  15. DOBUTREX [Concomitant]
  16. RHYTHMY (RILMAZAFONE HYDROCHLORIDE HYDRATE) [Concomitant]
  17. MAGMITT (MAGNESIUM OXIDE) [Concomitant]
  18. LEVOTHYROXINE SODIUM [Concomitant]
  19. METHYCOBAL (MECOBALAMIN) [Concomitant]
  20. CELESTAMINE TAB [Concomitant]
  21. FAMOTIDINE [Concomitant]
  22. URSO 250 [Concomitant]
  23. SIGMART (NICORANDIL) [Concomitant]
  24. THERADIA (SULFADIAZINE) [Concomitant]
  25. HIRUDOID (HEPARINOID) [Concomitant]
  26. CLOBETASOL PROPIONATE [Concomitant]
  27. CLONAZEPAM [Concomitant]
  28. ALLOPURINOL [Concomitant]
  29. SINGULAIR [Concomitant]
  30. SODIUM ALGINATE CALCIUM GLUCONATE INJ [Concomitant]
  31. RULID (ROXITHROMYCIN) [Concomitant]
  32. PREDNISOLONE [Concomitant]
  33. FRANDOL (ISOSORBIE DINIITRATE) [Concomitant]
  34. ARTIST (CARVEDILOL) [Concomitant]

REACTIONS (2)
  - PRURITUS [None]
  - RASH [None]
